FAERS Safety Report 19463592 (Version 7)
Quarter: 2021Q3

REPORT INFORMATION
  Report Type: Spontaneous
  Country: DE (occurrence: DE)
  Receive Date: 20210625
  Receipt Date: 20210916
  Transmission Date: 20211014
  Serious: Yes (Other)
  Sender: FDA-Public Use
  Company Number: DE-ASTRAZENECA-2021A494396

PATIENT
  Sex: Female

DRUGS (1)
  1. DUAKLIR [Suspect]
     Active Substance: ACLIDINIUM BROMIDE\FORMOTEROL FUMARATE
     Dosage: 340/12UG, PER DAY
     Route: 055

REACTIONS (5)
  - Foreign body in throat [Unknown]
  - Cough [Unknown]
  - Dyspnoea [Unknown]
  - Fear [Unknown]
  - Device breakage [Unknown]
